FAERS Safety Report 13905270 (Version 2)
Quarter: 2017Q3

REPORT INFORMATION
  Report Type: Report from Study
  Country: BR (occurrence: BR)
  Receive Date: 20170825
  Receipt Date: 20170906
  Transmission Date: 20171127
  Serious: Yes (Other)
  Sender: FDA-Public Use
  Company Number: PHHY2015BR142986

PATIENT
  Sex: Female
  Weight: 80 kg

DRUGS (3)
  1. HYDREA [Concomitant]
     Active Substance: HYDROXYUREA
     Indication: CHRONIC MYELOID LEUKAEMIA
     Route: 065
  2. GLIVEC [Suspect]
     Active Substance: IMATINIB MESYLATE
     Indication: CHRONIC MYELOID LEUKAEMIA
     Dosage: 400 MG, QD
     Route: 048
     Dates: start: 200912
  3. IMATINIB [Suspect]
     Active Substance: IMATINIB
     Indication: CHRONIC MYELOID LEUKAEMIA
     Dosage: 400 MG, QD
     Route: 065

REACTIONS (29)
  - Pharyngeal oedema [Unknown]
  - Dysphagia [Unknown]
  - Movement disorder [Unknown]
  - Blood cholesterol increased [Recovered/Resolved]
  - Pain [Unknown]
  - Immunodeficiency [Unknown]
  - Blood viscosity increased [Unknown]
  - Muscle spasms [Unknown]
  - Vomiting [Unknown]
  - Feeding disorder [Unknown]
  - Arthralgia [Unknown]
  - Eyelid oedema [Unknown]
  - Stress [Unknown]
  - Malaise [Unknown]
  - Swelling [Unknown]
  - Somnolence [Unknown]
  - Skin discolouration [Unknown]
  - Depression [Unknown]
  - Weight increased [Unknown]
  - Headache [Unknown]
  - Anaemia [Unknown]
  - Hyperglycaemia [Unknown]
  - Fatigue [Unknown]
  - Weight decreased [Unknown]
  - Platelet count increased [Unknown]
  - Dysgeusia [Unknown]
  - Decreased appetite [Unknown]
  - Nausea [Unknown]
  - White blood cell count increased [Recovered/Resolved]
